FAERS Safety Report 4382591-2 (Version None)
Quarter: 2004Q2

REPORT INFORMATION
  Report Type: 
  Country: None (occurrence: None)
  Receive Date: 20040622
  Receipt Date: 20031104
  Transmission Date: 20050107
  Serious: Yes (Hospitalization)
  Sender: FDA-Public Use
  Company Number: FR-MERCK-0311FRA00014

PATIENT
  Age: 98 Year
  Sex: Male

DRUGS (5)
  1. DIGOXIN [Concomitant]
     Route: 048
  2. PROSCAR [Suspect]
     Indication: PROSTATIC ADENOMA
     Route: 048
     Dates: start: 20030501, end: 20031101
  3. IFENPRODIL TARTRATE [Concomitant]
     Route: 048
  4. TAMSULOSIN HYDROCHLORIDE [Concomitant]
     Route: 048
  5. TRIMETAZIDINE HYDROCHLORIDE [Concomitant]
     Route: 048

REACTIONS (2)
  - HAEMATURIA [None]
  - HYPERGLYCAEMIA [None]
